FAERS Safety Report 8269969-1 (Version None)
Quarter: 2012Q2

REPORT INFORMATION
  Report Type: 
  Country: None (occurrence: None)
  Receive Date: 20120410
  Receipt Date: 20120404
  Transmission Date: 20120825
  Serious: No
  Sender: FDA-Public Use
  Company Number: US-PFIZER INC-2012085735

PATIENT
  Sex: Male
  Weight: 70.295 kg

DRUGS (3)
  1. ADVIL PM [Suspect]
     Indication: NASOPHARYNGITIS
     Dosage: UNK, 2X/DAY
     Route: 048
  2. ADVIL PM [Suspect]
     Indication: EPISTAXIS
  3. ADVIL PM [Suspect]
     Indication: SPUTUM DISCOLOURED

REACTIONS (1)
  - MALAISE [None]
